FAERS Safety Report 14848803 (Version 2)
Quarter: 2018Q2

REPORT INFORMATION
  Report Type: Spontaneous
  Country: US (occurrence: US)
  Receive Date: 20180504
  Receipt Date: 20180621
  Transmission Date: 20180711
  Serious: Yes (Other)
  Sender: FDA-Public Use
  Company Number: US-ENDO PHARMACEUTICALS INC-2018-036032

PATIENT
  Age: 55 Year
  Sex: Male
  Weight: 74.83 kg

DRUGS (4)
  1. XIAFLEX [Suspect]
     Active Substance: COLLAGENASE CLOSTRIDIUM HISTOLYTICUM
     Dosage: 0.58 MG, CYCLE 1 INJECTION 1
     Route: 058
     Dates: start: 20180206
  2. XIAFLEX [Suspect]
     Active Substance: COLLAGENASE CLOSTRIDIUM HISTOLYTICUM
     Indication: PEYRONIE^S DISEASE
     Dosage: 0.58 MG, CYCLE 2 INJECTION 2
     Route: 058
     Dates: start: 20180322, end: 20180322
  3. XIAFLEX [Suspect]
     Active Substance: COLLAGENASE CLOSTRIDIUM HISTOLYTICUM
     Dosage: 0.58 MG, CYCLE 2 INJECTION 1
     Route: 058
     Dates: start: 20180320
  4. XIAFLEX [Suspect]
     Active Substance: COLLAGENASE CLOSTRIDIUM HISTOLYTICUM
     Dosage: 0.58 MG, CYCLE 1 INJECTION 2
     Route: 058
     Dates: start: 20180218

REACTIONS (9)
  - Inappropriate schedule of drug administration [Unknown]
  - Injection site bruising [Not Recovered/Not Resolved]
  - Injection site pain [Not Recovered/Not Resolved]
  - Dysuria [Not Recovered/Not Resolved]
  - Penile pain [Not Recovered/Not Resolved]
  - Injection site swelling [Not Recovered/Not Resolved]
  - Penile swelling [Not Recovered/Not Resolved]
  - Incorrect route of drug administration [Unknown]
  - Penile contusion [Recovered/Resolved]

NARRATIVE: CASE EVENT DATE: 201802
